FAERS Safety Report 9425973 (Version 2)
Quarter: 2013Q3

REPORT INFORMATION
  Report Type: Spontaneous
  Country: US (occurrence: US)
  Receive Date: 20130729
  Receipt Date: 20130827
  Transmission Date: 20140515
  Serious: Yes (Hospitalization, Other)
  Sender: FDA-Public Use
  Company Number: US-009507513-1307USA013214

PATIENT
  Age: 51 Year
  Sex: Female

DRUGS (4)
  1. TEMODAR [Suspect]
     Indication: BRAIN NEOPLASM
     Dosage: 340 MG DAILY FOR 5 DAYS EACH MONTH
     Route: 048
  2. KEPPRA [Concomitant]
  3. DEXAMETHASONE [Concomitant]
  4. PANTOPRAZOLE [Concomitant]

REACTIONS (2)
  - Convulsion [Recovered/Resolved]
  - Vomiting [Recovered/Resolved]
